FAERS Safety Report 7993425-9 (Version None)
Quarter: 2011Q4

REPORT INFORMATION
  Report Type: 
  Country: None (occurrence: None)
  Receive Date: 20111219
  Receipt Date: 20110308
  Transmission Date: 20120403
  Serious: No
  Sender: FDA-Public Use
  Company Number: US-ASTRAZENECA-2011SE12939

PATIENT
  Age: 64 Year
  Sex: Male

DRUGS (4)
  1. NIASPAN [Concomitant]
     Indication: BLOOD CHOLESTEROL INCREASED
  2. CRESTOR [Suspect]
     Indication: BLOOD CHOLESTEROL INCREASED
     Route: 048
  3. CRESTOR [Suspect]
     Route: 048
     Dates: end: 20110301
  4. LOVAZA [Concomitant]
     Indication: BLOOD CHOLESTEROL INCREASED

REACTIONS (3)
  - BLOOD CHOLESTEROL DECREASED [None]
  - GLYCOSYLATED HAEMOGLOBIN INCREASED [None]
  - LOW DENSITY LIPOPROTEIN DECREASED [None]
